FAERS Safety Report 5118450-7 (Version None)
Quarter: 2006Q3

REPORT INFORMATION
  Report Type: 
  Country: None (occurrence: None)
  Receive Date: 20060926
  Receipt Date: 20060915
  Transmission Date: 20061208
  Serious: Yes (Other)
  Sender: FDA-Public Use
  Company Number: 236048K06USA

PATIENT
  Age: 57 Year
  Sex: Female

DRUGS (8)
  1. REBIF [Suspect]
     Indication: MULTIPLE SCLEROSIS
     Dosage: 22 MCG, 3 IN 1 WEEKS, SUBCUTANEOUS
     Route: 058
     Dates: start: 20050110
  2. CARDIZEM (DILTIAZEM /00489701/) [Concomitant]
  3. VASOTEC [Concomitant]
  4. SPIRONOLACTONE [Concomitant]
  5. ESTRACE (ESTRADIOL  /00045401/) [Concomitant]
  6. ZETIA (EZEMTIMIBE) [Concomitant]
  7. NEXIUM [Concomitant]
  8. PROZAC [Concomitant]

REACTIONS (5)
  - HEADACHE [None]
  - HEPATIC NEOPLASM [None]
  - HYPOTENSION [None]
  - LUNG NEOPLASM [None]
  - PAIN [None]
